FAERS Safety Report 4556858-9 (Version None)
Quarter: 2005Q1

REPORT INFORMATION
  Report Type: 
  Country: None (occurrence: None)
  Receive Date: 20050120
  Receipt Date: 20050112
  Transmission Date: 20050727
  Serious: Yes (Hospitalization)
  Sender: FDA-Public Use
  Company Number: JP-MERCK-0501USA01939

PATIENT
  Age: 65 Year
  Sex: Male

DRUGS (6)
  1. PEPCID [Suspect]
     Route: 048
     Dates: end: 20011101
  2. PEPCID [Suspect]
     Route: 048
     Dates: start: 20011201
  3. DILTIAZEM HYDROCHLORIDE [Concomitant]
     Route: 065
     Dates: end: 20011101
  4. DILTIAZEM HYDROCHLORIDE [Concomitant]
     Route: 065
     Dates: start: 20011201
  5. ATORVASTATIN CALCIUM [Concomitant]
     Route: 065
     Dates: end: 20011101
  6. ATORVASTATIN CALCIUM [Concomitant]
     Route: 065
     Dates: start: 20011201

REACTIONS (3)
  - EXTRANODAL MARGINAL ZONE B-CELL LYMPHOMA (MALT TYPE) [None]
  - HELICOBACTER PYLORI IDENTIFICATION TEST POSITIVE [None]
  - IDIOPATHIC THROMBOCYTOPENIC PURPURA [None]
